FAERS Safety Report 8461326-8 (Version None)
Quarter: 2012Q2

REPORT INFORMATION
  Report Type: 
  Country: None (occurrence: None)
  Receive Date: 20120625
  Receipt Date: 20120613
  Transmission Date: 20120825
  Serious: Yes (Other)
  Sender: FDA-Public Use
  Company Number: CA-JNJFOC-20120607104

PATIENT
  Sex: Male
  Weight: 113.6 kg

DRUGS (2)
  1. REMICADE [Suspect]
     Indication: CROHN'S DISEASE
     Route: 042
     Dates: start: 20060620
  2. IMURAN [Concomitant]
     Route: 065

REACTIONS (4)
  - SURGERY [None]
  - PAIN IN EXTREMITY [None]
  - HYPOAESTHESIA [None]
  - PARAESTHESIA [None]
